FAERS Safety Report 6456811-4 (Version None)
Quarter: 2009Q4

REPORT INFORMATION
  Report Type: 
  Country: None (occurrence: None)
  Receive Date: 20091124
  Receipt Date: 20091124
  Transmission Date: 20100525
  Serious: No
  Sender: FDA-Public Use
  Company Number: None

PATIENT
  Age: 68 Year
  Sex: Female

DRUGS (2)
  1. ENBREL [Suspect]
     Indication: PSORIASIS
     Dosage: INJECT 50MG SUB-Q TWICE A WEEK TWICE A WEEK SQ
     Route: 058
  2. ENBREL [Suspect]
     Indication: PSORIATIC ARTHROPATHY
     Dosage: INJECT 50MG SUB-Q TWICE A WEEK TWICE A WEEK SQ
     Route: 058

REACTIONS (1)
  - CELLULITIS [None]
